FAERS Safety Report 22612192 (Version 1)
Quarter: 2023Q2

REPORT INFORMATION
  Report Type: Report from Study
  Country: MX (occurrence: MX)
  Receive Date: 20230617
  Receipt Date: 20230617
  Transmission Date: 20230721
  Serious: Yes (Other)
  Sender: FDA-Public Use
  Company Number: MX-002147023-NVSC2023MX137604

PATIENT
  Sex: Male

DRUGS (1)
  1. TRILEPTAL [Suspect]
     Active Substance: OXCARBAZEPINE
     Indication: Seizure
     Dosage: 1 DOSAGE FORM, TID, SINCE THE  PATIENT  WAS 23  YEARS OLD (AS REPORTED)
     Route: 048

REACTIONS (5)
  - Petit mal epilepsy [Unknown]
  - Seizure [Unknown]
  - Arachnoid cyst [Unknown]
  - Liver disorder [Unknown]
  - Inappropriate schedule of product administration [Not Recovered/Not Resolved]
